FAERS Safety Report 16138792 (Version 1)
Quarter: 2019Q1

REPORT INFORMATION
  Report Type: Report from Study
  Country: US (occurrence: US)
  Receive Date: 20190330
  Receipt Date: 20190330
  Transmission Date: 20190418
  Serious: Yes (Other)
  Sender: FDA-Public Use
  Company Number: US-UCBSA-2019012729

PATIENT
  Sex: Male

DRUGS (4)
  1. ONFI [Concomitant]
     Active Substance: CLOBAZAM
     Indication: SEIZURE
     Dosage: UNK
  2. LEVETIRACETAM. [Suspect]
     Active Substance: LEVETIRACETAM
     Indication: SEIZURE
     Dosage: UNK
  3. PHENOBARBITAL. [Concomitant]
     Active Substance: PHENOBARBITAL
     Indication: SEIZURE
     Dosage: UNK
  4. DEPAKOTE [Concomitant]
     Active Substance: DIVALPROEX SODIUM
     Indication: SEIZURE

REACTIONS (4)
  - Decreased appetite [Unknown]
  - Seizure [Unknown]
  - Abnormal behaviour [Unknown]
  - Aggression [Unknown]
